FAERS Safety Report 11722796 (Version 2)
Quarter: 2015Q4

REPORT INFORMATION
  Report Type: Report from Study
  Country: US (occurrence: US)
  Receive Date: 20151111
  Receipt Date: 20151125
  Transmission Date: 20160304
  Serious: Yes (Death, Life-Threatening, Other)
  Sender: FDA-Public Use
  Company Number: US-TAKEDA-2015MPI007578

PATIENT
  Age: 47 Year
  Sex: Male

DRUGS (55)
  1. VELCADE [Suspect]
     Active Substance: BORTEZOMIB
     Indication: PLASMA CELL MYELOMA
     Dosage: 2.7 MG/M2, UNK
     Route: 065
     Dates: start: 20151004, end: 20151013
  2. METHOTREXATE [Suspect]
     Active Substance: METHOTREXATE
     Indication: PLASMA CELL MYELOMA
     Dosage: UNK
     Route: 065
     Dates: start: 20151007, end: 20151017
  3. NEUPOGEN [Concomitant]
     Active Substance: FILGRASTIM
  4. OXYCONTIN [Concomitant]
     Active Substance: OXYCODONE HYDROCHLORIDE
  5. NEBCIN [Concomitant]
     Active Substance: TOBRAMYCIN SULFATE
  6. INTRALIPID [Concomitant]
     Active Substance: EGG PHOSPHOLIPIDS\GLYCERIN\SOYBEAN OIL
  7. ZOFRAN [Concomitant]
     Active Substance: ONDANSETRON HYDROCHLORIDE
  8. XALATAN [Concomitant]
     Active Substance: LATANOPROST
  9. NORVASC [Concomitant]
     Active Substance: AMLODIPINE BESYLATE
     Indication: HYPOTENSION
  10. AMLODIPINE [Concomitant]
     Active Substance: AMLODIPINE BESYLATE
     Indication: HYPOTENSION
  11. ROMAZICON [Concomitant]
     Active Substance: FLUMAZENIL
  12. DAPTOMYCIN. [Concomitant]
     Active Substance: DAPTOMYCIN
  13. FLUDARABINE [Suspect]
     Active Substance: FLUDARABINE PHOSPHATE
     Indication: PLASMA CELL MYELOMA
     Dosage: 30 MG/M2, UNK
     Route: 065
     Dates: start: 20151001, end: 20151004
  14. APRESOLINE HYDROCHLORIDE [Concomitant]
     Active Substance: HYDRALAZINE HYDROCHLORIDE
  15. LIDOCAINE. [Concomitant]
     Active Substance: LIDOCAINE
  16. COMPAZINE [Concomitant]
     Active Substance: PROCHLORPERAZINE MALEATE
  17. KLOR-CON [Concomitant]
     Active Substance: POTASSIUM CHLORIDE
  18. METOPROLOL [Concomitant]
     Active Substance: METOPROLOL
     Indication: HYPOTENSION
  19. DECADRON [Concomitant]
     Active Substance: DEXAMETHASONE
  20. SIROLIMUS. [Concomitant]
     Active Substance: SIROLIMUS
  21. SENOKOT-S [Concomitant]
     Active Substance: DOCUSATE SODIUM\SENNOSIDES
  22. DEXTROSE. [Concomitant]
     Active Substance: DEXTROSE
  23. DIFLUCAN [Concomitant]
     Active Substance: FLUCONAZOLE
  24. MAGNESIUM SULFATE. [Concomitant]
     Active Substance: MAGNESIUM SULFATE
  25. SODIUM PHOSPHATE [Concomitant]
     Active Substance: SODIUM PHOSPHATE
  26. URSODIOL. [Concomitant]
     Active Substance: URSODIOL
  27. CALCIUM GLUCONATE. [Concomitant]
     Active Substance: CALCIUM GLUCONATE
  28. HYDRALAZINE [Concomitant]
     Active Substance: HYDRALAZINE HYDROCHLORIDE
  29. ZYLOPRIM [Concomitant]
     Active Substance: ALLOPURINOL
  30. POTASSIUM CHLORIDE. [Concomitant]
     Active Substance: POTASSIUM CHLORIDE
  31. DEMEROL [Concomitant]
     Active Substance: MEPERIDINE HYDROCHLORIDE
  32. BLINDED PLACEBO [Suspect]
     Active Substance: INVESTIGATIONAL PRODUCT
     Indication: PLASMA CELL MYELOMA
     Dosage: UNK
     Route: 048
  33. TACROLIMUS. [Suspect]
     Active Substance: TACROLIMUS
     Indication: PLASMA CELL MYELOMA
     Dosage: UNK
     Route: 065
  34. ALKERAN [Suspect]
     Active Substance: MELPHALAN
     Indication: PLASMA CELL MYELOMA
     Dosage: 70 MG/M2, UNK
     Route: 065
     Dates: start: 20151001, end: 20151004
  35. DILAUDID [Concomitant]
     Active Substance: HYDROMORPHONE HYDROCHLORIDE
  36. MIRALAX [Concomitant]
     Active Substance: POLYETHYLENE GLYCOL 3350
  37. HEPARIN [Concomitant]
     Active Substance: HEPARIN SODIUM
  38. VERSED [Concomitant]
     Active Substance: MIDAZOLAM HYDROCHLORIDE
  39. MAXIPIME [Concomitant]
     Active Substance: CEFEPIME HYDROCHLORIDE
  40. LEVAQUIN [Concomitant]
     Active Substance: LEVOFLOXACIN
  41. ZOVIRAX [Concomitant]
     Active Substance: ACYCLOVIR
  42. ATIVAN [Concomitant]
     Active Substance: LORAZEPAM
  43. SODIUM CHLORIDE. [Concomitant]
     Active Substance: SODIUM CHLORIDE
  44. NARCAN [Concomitant]
     Active Substance: NALOXONE HYDROCHLORIDE
  45. FLOMAX [Concomitant]
     Active Substance: TAMSULOSIN HYDROCHLORIDE
  46. CUBICIN [Concomitant]
     Active Substance: DAPTOMYCIN
  47. IMODIUM [Concomitant]
     Active Substance: LOPERAMIDE HYDROCHLORIDE
  48. PROTONIX                           /00661201/ [Concomitant]
     Active Substance: OMEPRAZOLE
  49. ROXICODONE [Concomitant]
     Active Substance: OXYCODONE HYDROCHLORIDE
  50. ACTIGALL [Concomitant]
     Active Substance: URSODIOL
  51. ANCEF [Concomitant]
     Active Substance: CEFAZOLIN SODIUM
  52. BLINDED IXAZOMIB [Suspect]
     Active Substance: IXAZOMIB
     Indication: PLASMA CELL MYELOMA
     Dosage: UNK
     Route: 048
  53. XOPENEX [Concomitant]
     Active Substance: LEVALBUTEROL HYDROCHLORIDE
  54. TYLENOL [Concomitant]
     Active Substance: ACETAMINOPHEN
  55. SUBLIMAZE [Concomitant]
     Active Substance: FENTANYL CITRATE

REACTIONS (13)
  - Hypoxia [None]
  - Sepsis [Fatal]
  - Pneumonia [None]
  - Blood urea increased [None]
  - Enterococcus test positive [None]
  - Pericardial effusion [None]
  - Stem cell transplant [None]
  - Blood sodium decreased [None]
  - Blood calcium decreased [None]
  - Posterior reversible encephalopathy syndrome [Unknown]
  - Pleural effusion [None]
  - Intestinal obstruction [None]
  - Pneumonia aspiration [None]

NARRATIVE: CASE EVENT DATE: 20151014
